FAERS Safety Report 5180327-9 (Version None)
Quarter: 2006Q4

REPORT INFORMATION
  Report Type: 
  Country: None (occurrence: None)
  Receive Date: 20061219
  Receipt Date: 20060911
  Transmission Date: 20070319
  Serious: No
  Sender: FDA-Public Use
  Company Number: US-AMGEN-KDL193053

PATIENT
  Sex: Female

DRUGS (2)
  1. ENBREL [Suspect]
     Indication: PSORIATIC ARTHROPATHY
     Dates: start: 20050501
  2. UNKNOWN [Concomitant]

REACTIONS (8)
  - ARTERIAL DISORDER [None]
  - JOINT ARTHROPLASTY [None]
  - LIGAMENT DISORDER [None]
  - MUSCULOSKELETAL STIFFNESS [None]
  - POST PROCEDURAL COMPLICATION [None]
  - POSTOPERATIVE WOUND INFECTION [None]
  - SKIN INFECTION [None]
  - TENDON DISORDER [None]
